FAERS Safety Report 6201929-4 (Version None)
Quarter: 2009Q2

REPORT INFORMATION
  Report Type: 
  Country: None (occurrence: None)
  Receive Date: 20090526
  Receipt Date: 20090518
  Transmission Date: 20091009
  Serious: Yes (Hospitalization)
  Sender: FDA-Public Use
  Company Number: PHHY2009FR19298

PATIENT

DRUGS (1)
  1. NEORAL [Suspect]
     Indication: RENAL TRANSPLANT
     Dosage: 50 MG IN MORNING AND 30 MG IN EVENING

REACTIONS (3)
  - CONFUSIONAL STATE [None]
  - FACIAL PALSY [None]
  - HEADACHE [None]
